FAERS Safety Report 5518623-5 (Version None)
Quarter: 2007Q4

REPORT INFORMATION
  Report Type: 
  Country: None (occurrence: None)
  Receive Date: 20071115
  Receipt Date: 20071106
  Transmission Date: 20080405
  Serious: Yes (Other)
  Sender: FDA-Public Use
  Company Number: US-PFIZER INC-2007093807

PATIENT
  Sex: Female
  Weight: 78.181 kg

DRUGS (4)
  1. DEPO-MEDROL [Suspect]
     Indication: BACK DISORDER
     Route: 051
  2. NOVOCAIN [Suspect]
     Indication: BACK DISORDER
  3. VALIUM [Concomitant]
  4. NORCO [Concomitant]

REACTIONS (9)
  - CLAUSTROPHOBIA [None]
  - DRUG ADMINISTRATION ERROR [None]
  - FIBROMYALGIA [None]
  - HYPOAESTHESIA [None]
  - MUSCLE SPASMS [None]
  - MUSCLE TIGHTNESS [None]
  - PARAESTHESIA [None]
  - PERIPHERAL COLDNESS [None]
  - VERTIGO [None]
